FAERS Safety Report 7584078-2 (Version None)
Quarter: 2011Q2

REPORT INFORMATION
  Report Type: 
  Country: None (occurrence: None)
  Receive Date: 20110630
  Receipt Date: 20110621
  Transmission Date: 20111010
  Serious: Yes (Hospitalization, Other)
  Sender: FDA-Public Use
  Company Number: US-MERCK-1012USA03782

PATIENT
  Age: 51 Year
  Sex: Female
  Weight: 66 kg

DRUGS (6)
  1. ALENDRONATE SODIUM [Suspect]
     Route: 048
     Dates: start: 20080803, end: 20091102
  2. CALCIUM (UNSPECIFIED) AND VITAMIN D (UNSPECIFIED) [Concomitant]
     Route: 048
  3. VITAMINS (UNSPECIFIED) [Concomitant]
     Route: 065
  4. FOSAMAX [Suspect]
     Route: 048
     Dates: start: 19980101, end: 20100101
  5. PREMARIN [Concomitant]
     Route: 065
  6. FOSAMAX [Suspect]
     Indication: OSTEOPOROSIS
     Route: 048
     Dates: start: 19980101, end: 20100101

REACTIONS (31)
  - APPENDIX DISORDER [None]
  - BACK PAIN [None]
  - EXCORIATION [None]
  - INTERVERTEBRAL DISC DEGENERATION [None]
  - HAEMORRHOIDS [None]
  - TEMPOROMANDIBULAR JOINT SYNDROME [None]
  - BONE PAIN [None]
  - MUSCULOSKELETAL PAIN [None]
  - CARDIAC DISORDER [None]
  - HYPOTHYROIDISM [None]
  - GINGIVAL DISORDER [None]
  - JOINT SPRAIN [None]
  - SYNOVIAL CYST [None]
  - MENISCUS LESION [None]
  - JOINT INJURY [None]
  - ROTATOR CUFF SYNDROME [None]
  - DEPRESSION [None]
  - PAIN [None]
  - BONE DISORDER [None]
  - MEDICAL DEVICE COMPLICATION [None]
  - EPICONDYLITIS [None]
  - SINUS DISORDER [None]
  - RECTAL FISSURE [None]
  - FEMUR FRACTURE [None]
  - FALL [None]
  - ARTHRITIS [None]
  - GASTROOESOPHAGEAL REFLUX DISEASE [None]
  - PATELLOFEMORAL PAIN SYNDROME [None]
  - HOSPITALISATION [None]
  - CARPAL TUNNEL SYNDROME [None]
  - MYALGIA [None]
